FAERS Safety Report 15769379 (Version 1)
Quarter: 2018Q4

REPORT INFORMATION
  Report Type: Spontaneous
  Country: FR (occurrence: FR)
  Receive Date: 20181228
  Receipt Date: 20181228
  Transmission Date: 20190205
  Serious: Yes (Hospitalization)
  Sender: FDA-Public Use
  Company Number: FR-BAXTER-2018BAX031102

PATIENT
  Sex: Female
  Weight: 1.8 kg

DRUGS (2)
  1. GLUCOSE 10% BAXTER, SOLUTION POUR PERFUSION [Suspect]
     Active Substance: DEXTROSE
     Indication: PARENTERAL NUTRITION
     Route: 042
     Dates: start: 20180109, end: 20180109
  2. PEDIAVEN AP-HP NOUVEAU-NE 1 [Suspect]
     Active Substance: AMINO ACIDS\DEXTROSE\ELECTROLYTES NOS
     Indication: PARENTERAL NUTRITION
     Route: 042
     Dates: start: 20180109, end: 20180109

REACTIONS (2)
  - Administration site necrosis [Recovered/Resolved]
  - Administration site extravasation [Recovered/Resolved]

NARRATIVE: CASE EVENT DATE: 20180109
